FAERS Safety Report 11481550 (Version 2)
Quarter: 2015Q3

REPORT INFORMATION
  Report Type: Spontaneous
  Country: FR (occurrence: FR)
  Receive Date: 20150909
  Receipt Date: 20150916
  Transmission Date: 20151125
  Serious: Yes (Hospitalization)
  Sender: FDA-Public Use
  Company Number: FR-JNJFOC-20150905539

PATIENT
  Age: 75 Year
  Sex: Female

DRUGS (10)
  1. ECONAZOLE [Concomitant]
     Active Substance: ECONAZOLE
     Route: 065
  2. DIFFU K [Concomitant]
     Active Substance: POTASSIUM CHLORIDE
     Route: 065
  3. ALLOPURINOL. [Concomitant]
     Active Substance: ALLOPURINOL
     Route: 065
  4. LASILIX [Concomitant]
     Active Substance: FUROSEMIDE
     Dosage: 2 TABLETS IN THE MORNING AND 1 AT MIDDAY
     Route: 048
  5. ORACILLINE [Concomitant]
     Active Substance: PENICILLIN V
     Route: 065
  6. XARELTO [Suspect]
     Active Substance: RIVAROXABAN
     Indication: ATRIAL FIBRILLATION
     Route: 048
     Dates: end: 20150509
  7. EUPRESSYL [Concomitant]
     Active Substance: URAPIDIL
     Route: 065
  8. AMLOR [Concomitant]
     Active Substance: AMLODIPINE BESYLATE
     Route: 065
  9. KENZEN [Concomitant]
     Active Substance: CANDESARTAN
     Route: 065
  10. BISOPROLOL [Concomitant]
     Active Substance: BISOPROLOL
     Route: 065

REACTIONS (2)
  - Drug ineffective [Recovering/Resolving]
  - Ischaemic stroke [Recovering/Resolving]

NARRATIVE: CASE EVENT DATE: 20150510
